FAERS Safety Report 25559498 (Version 1)
Quarter: 2025Q3

REPORT INFORMATION
  Report Type: Spontaneous
  Country: US (occurrence: US)
  Receive Date: 20250715
  Receipt Date: 20250715
  Transmission Date: 20251021
  Serious: No
  Sender: BIOMARIN
  Company Number: US-SA-2025SA195025

PATIENT
  Age: 13 Year
  Sex: Male

DRUGS (1)
  1. LARONIDASE [Suspect]
     Active Substance: LARONIDASE
     Indication: Mucopolysaccharidosis I
     Dosage: 29 (UNITS UNSPECIFIED), QW
     Dates: start: 201712

REACTIONS (2)
  - Pain [Unknown]
  - Eye operation [Unknown]
